FAERS Safety Report 9005374 (Version 1)
Quarter: 2013Q1

REPORT INFORMATION
  Report Type: Spontaneous
  Country: FR (occurrence: FR)
  Receive Date: 20130108
  Receipt Date: 20130108
  Transmission Date: 20140127
  Serious: Yes (Hospitalization)
  Sender: FDA-Public Use
  Company Number: FR-SANOFI-AVENTIS-2013SA000774

PATIENT
  Age: 91 Year
  Sex: Male

DRUGS (17)
  1. LOVENOX [Suspect]
     Indication: PRODUCT USED FOR UNKNOWN INDICATION
     Route: 058
     Dates: start: 20121021
  2. DAFALGAN [Suspect]
     Indication: PRODUCT USED FOR UNKNOWN INDICATION
     Route: 065
     Dates: start: 20121113, end: 20121120
  3. ALEPSAL [Concomitant]
  4. DI-HYDAN [Concomitant]
  5. VADILEX [Concomitant]
     Dates: end: 20121021
  6. SERESTA [Concomitant]
  7. NICOBION [Concomitant]
  8. VITAMIN B1 AND B6 [Concomitant]
     Dates: end: 20121021
  9. KALEORID [Concomitant]
     Dates: end: 20121021
  10. FORLAX [Concomitant]
     Dates: end: 20121021
  11. SKENAN [Concomitant]
     Dates: end: 20121021
  12. MORPHINE [Concomitant]
     Dates: start: 20121106
  13. LASILIX [Concomitant]
     Dates: end: 20121028
  14. INEXIUM [Concomitant]
     Dates: start: 20121106, end: 20121118
  15. ROCEPHINE [Concomitant]
     Dates: start: 20121027, end: 20121108
  16. FLAGYL [Concomitant]
     Dates: start: 20121027, end: 20121108
  17. CLAFORAN [Concomitant]
     Dates: start: 20121116

REACTIONS (1)
  - Liver disorder [Recovered/Resolved]
